FAERS Safety Report 12402975 (Version 1)
Quarter: 2016Q2

REPORT INFORMATION
  Report Type: Report from Study
  Country: GB (occurrence: GB)
  Receive Date: 20160525
  Receipt Date: 20160525
  Transmission Date: 20160815
  Serious: Yes (Hospitalization)
  Sender: FDA-Public Use
  Company Number: GB-ROCHE-1762237

PATIENT
  Age: 71 Year
  Sex: Female

DRUGS (1)
  1. RITUXIMAB [Suspect]
     Active Substance: RITUXIMAB
     Indication: RHEUMATOID ARTHRITIS
     Route: 065
     Dates: start: 20100308

REACTIONS (4)
  - Pneumonia [Unknown]
  - Synovitis [Unknown]
  - Acute kidney injury [Unknown]
  - Sepsis [Unknown]

NARRATIVE: CASE EVENT DATE: 20160106
